FAERS Safety Report 6675442-4 (Version None)
Quarter: 2010Q2

REPORT INFORMATION
  Report Type: 
  Country: None (occurrence: None)
  Receive Date: 20100409
  Receipt Date: 20100401
  Transmission Date: 20101027
  Serious: Yes (Death, Other)
  Sender: FDA-Public Use
  Company Number: A0848176A

PATIENT
  Age: 51 Year
  Sex: Male

DRUGS (1)
  1. PROMACTA [Suspect]
     Indication: HEPATITIS C
     Dosage: 50MG PER DAY
     Route: 048
     Dates: start: 20090915, end: 20091231

REACTIONS (1)
  - GASTRIC VARICES HAEMORRHAGE [None]
